FAERS Safety Report 22045754 (Version 3)
Quarter: 2023Q2

REPORT INFORMATION
  Report Type: Spontaneous
  Country: US (occurrence: US)
  Receive Date: 20230228
  Receipt Date: 20230630
  Transmission Date: 20230722
  Serious: No
  Sender: FDA-Public Use
  Company Number: US-PFIZER INC-PV202300036512

PATIENT
  Age: 85 Year
  Sex: Female

DRUGS (2)
  1. IBRANCE [Suspect]
     Active Substance: PALBOCICLIB
     Dosage: 75 MG
  2. IBRANCE [Suspect]
     Active Substance: PALBOCICLIB
     Dosage: 75 MG, DAILY, (TAKE 1 TABLET (75 MG) BY MOUTH DAILY DAYS 1-14 THEN 14 DAYS OFF)
     Route: 048

REACTIONS (3)
  - COVID-19 [Unknown]
  - Asthenia [Unknown]
  - Off label use [Unknown]
